FAERS Safety Report 20054604 (Version 1)
Quarter: 2021Q4

REPORT INFORMATION
  Report Type: Spontaneous
  Country: US (occurrence: None)
  Receive Date: 20211110
  Receipt Date: 20211110
  Transmission Date: 20220303
  Serious: No
  Sender: FDA-Public Use
  Company Number: 2021A785295

PATIENT

DRUGS (1)
  1. BYETTA [Suspect]
     Active Substance: EXENATIDE
     Dosage: 5.0UG UNKNOWN
     Route: 065

REACTIONS (2)
  - Blood glucose decreased [Unknown]
  - Product dispensing error [Unknown]
